FAERS Safety Report 14266432 (Version 1)
Quarter: 2017Q4

REPORT INFORMATION
  Report Type: Spontaneous
  Country: US (occurrence: US)
  Receive Date: 20171208
  Receipt Date: 20171208
  Transmission Date: 20180321
  Serious: Yes (Hospitalization)
  Sender: FDA-Public Use
  Company Number: None

PATIENT
  Age: 78 Year
  Sex: Male
  Weight: 144 kg

DRUGS (10)
  1. CABAZITAXEL [Suspect]
     Active Substance: CABAZITAXEL
     Indication: PROSTATE CANCER METASTATIC
     Dosage: ?          OTHER FREQUENCY:Q3W;?
     Route: 041
     Dates: start: 20170914, end: 20171116
  2. POTASSIUM CHLORIDE. [Concomitant]
     Active Substance: POTASSIUM CHLORIDE
  3. AMLODIPINE [Concomitant]
     Active Substance: AMLODIPINE BESYLATE
  4. METOPROLOL SUCCINATE XL [Concomitant]
     Active Substance: METOPROLOL SUCCINATE
  5. CARBOPLATIN. [Suspect]
     Active Substance: CARBOPLATIN
     Indication: PROSTATE CANCER METASTATIC
     Dosage: ?          OTHER FREQUENCY:Q3W;?
     Route: 041
     Dates: start: 20170914, end: 20171116
  6. APIXABAN [Concomitant]
     Active Substance: APIXABAN
  7. FUROSEMIDE. [Concomitant]
     Active Substance: FUROSEMIDE
  8. PREDNISONE. [Concomitant]
     Active Substance: PREDNISONE
  9. TELMISARTAN. [Concomitant]
     Active Substance: TELMISARTAN
  10. NEBIVILOL [Concomitant]

REACTIONS (6)
  - Blood creatinine increased [None]
  - Dizziness [None]
  - Large intestine polyp [None]
  - Fatigue [None]
  - Haemoglobin decreased [None]
  - Rectal haemorrhage [None]

NARRATIVE: CASE EVENT DATE: 20171207
